FAERS Safety Report 18661110 (Version 1)
Quarter: 2020Q4

REPORT INFORMATION
  Report Type: Spontaneous
  Country: US (occurrence: US)
  Receive Date: 20201224
  Receipt Date: 20201224
  Transmission Date: 20210114
  Serious: Yes (Other)
  Sender: FDA-Public Use
  Company Number: US-NOVOPROD-775769

PATIENT
  Age: 53 Year
  Sex: Male

DRUGS (2)
  1. NOVOLOG [Suspect]
     Active Substance: INSULIN ASPART
     Indication: TYPE 2 DIABETES MELLITUS
     Dosage: 8-10 UNITS WHEN I EAT
     Route: 058
  2. NOVOLOG [Suspect]
     Active Substance: INSULIN ASPART
     Dosage: 10 UNITS OF INSULIN 3 TIMES A NIGHT
     Route: 058

REACTIONS (5)
  - Device failure [Recovered/Resolved]
  - Hunger [Not Recovered/Not Resolved]
  - Blood glucose increased [Recovered/Resolved]
  - Thirst [Not Recovered/Not Resolved]
  - Confusional state [Not Recovered/Not Resolved]

NARRATIVE: CASE EVENT DATE: 20201216
